FAERS Safety Report 23191795 (Version 1)
Quarter: 2023Q4

REPORT INFORMATION
  Report Type: Spontaneous
  Country: ES (occurrence: ES)
  Receive Date: 20231116
  Receipt Date: 20231116
  Transmission Date: 20240109
  Serious: Yes (Other)
  Sender: FDA-Public Use
  Company Number: ES-SANDOZ-SDZ2023ES054007

PATIENT
  Age: 52 Year
  Sex: Male

DRUGS (2)
  1. CYPROTERONE [Suspect]
     Active Substance: CYPROTERONE
     Indication: Hormone therapy
     Dosage: 50 MG, Q12H
     Route: 065
  2. ESTRADIOL [Suspect]
     Active Substance: ESTRADIOL
     Indication: Gender dysphoria
     Dosage: 100 UG, EVERY 3 DAYS
     Route: 065

REACTIONS (1)
  - Meningioma [Unknown]
